FAERS Safety Report 16041891 (Version 9)
Quarter: 2021Q1

REPORT INFORMATION
  Report Type: Spontaneous
  Country: US (occurrence: US)
  Receive Date: 20190306
  Receipt Date: 20210107
  Transmission Date: 20210419
  Serious: No
  Sender: FDA-Public Use
  Company Number: US-PFIZER INC-2019097264

PATIENT
  Age: 61 Year
  Sex: Female
  Weight: 95 kg

DRUGS (3)
  1. CELECOXIB. [Suspect]
     Active Substance: CELECOXIB
     Indication: ARTHRITIS
     Dosage: 200 MG, 1X/DAY
  2. CELECOXIB. [Suspect]
     Active Substance: CELECOXIB
     Dosage: 200 MG, DAILY
     Dates: start: 2000
  3. CELECOXIB. [Suspect]
     Active Substance: CELECOXIB
     Indication: OSTEOARTHRITIS
     Dosage: 200 MG, 1X/DAY

REACTIONS (7)
  - Palpitations [Unknown]
  - Chest discomfort [Recovered/Resolved]
  - Product use issue [Unknown]
  - Dyspnoea [Recovered/Resolved]
  - Cardiac disorder [Unknown]
  - Drug ineffective [Unknown]
  - Off label use [Unknown]

NARRATIVE: CASE EVENT DATE: 2004
